FAERS Safety Report 10782604 (Version 1)
Quarter: 2015Q1

REPORT INFORMATION
  Report Type: Spontaneous
  Country: US (occurrence: US)
  Receive Date: 20150210
  Receipt Date: 20150210
  Transmission Date: 20150721
  Serious: Yes (Other)
  Sender: FDA-Public Use
  Company Number: US-CELGENEUS-USA-2015020540

PATIENT
  Sex: Female
  Weight: 94.43 kg

DRUGS (1)
  1. OTEZLA [Suspect]
     Active Substance: APREMILAST
     Indication: PSORIASIS
     Dosage: 60 MILLIGRAM
     Route: 048
     Dates: start: 20141114

REACTIONS (2)
  - Drug ineffective [Unknown]
  - Tendon disorder [Unknown]

NARRATIVE: CASE EVENT DATE: 2014
